FAERS Safety Report 5057181-9 (Version None)
Quarter: 2006Q3

REPORT INFORMATION
  Report Type: 
  Country: None (occurrence: None)
  Receive Date: 20060721
  Receipt Date: 20050601
  Transmission Date: 20061208
  Serious: No
  Sender: FDA-Public Use
  Company Number: US-GLAXOSMITHKLINE-A0560738A

PATIENT
  Age: 84 Year
  Sex: Female
  Weight: 81.8 kg

DRUGS (10)
  1. AVANDIA [Suspect]
     Dosage: 8MG PER DAY
     Route: 048
  2. VITAMINS [Concomitant]
  3. VITAMIN E [Concomitant]
  4. ASPIRIN [Concomitant]
  5. HUMULIN [Concomitant]
  6. LANTUS [Concomitant]
  7. HYZAAR [Concomitant]
  8. CLONIDINE [Concomitant]
  9. FLONASE [Concomitant]
  10. SINGULAIR [Concomitant]

REACTIONS (3)
  - HYPERSOMNIA [None]
  - JOINT SWELLING [None]
  - WEIGHT INCREASED [None]
